FAERS Safety Report 4838207-1 (Version None)
Quarter: 2005Q4

REPORT INFORMATION
  Report Type: 
  Country: None (occurrence: None)
  Receive Date: 20051123
  Receipt Date: 20051107
  Transmission Date: 20060501
  Serious: Yes (Hospitalization)
  Sender: FDA-Public Use
  Company Number: 2005BI020887

PATIENT
  Age: 42 Year
  Sex: Male
  Weight: 72 kg

DRUGS (11)
  1. ZEVALIN [Suspect]
     Indication: NON-HODGKIN'S LYMPHOMA
     Dosage: 1X; IV
     Route: 042
     Dates: start: 20041014, end: 20041014
  2. ZEVALIN [Suspect]
     Indication: NON-HODGKIN'S LYMPHOMA
     Dosage: 0.4 MCI/KG; 1X; IV
     Route: 042
     Dates: start: 20041021, end: 20041021
  3. RITUXIMAB [Concomitant]
  4. PARACETAMOL [Concomitant]
  5. CLEMASTINE [Concomitant]
  6. SULFOTRIM [Concomitant]
  7. ONDANSETRON [Concomitant]
  8. METOCLOPRAMIDE [Concomitant]
  9. MAGNESIUM [Concomitant]
  10. MORPHINE [Concomitant]
  11. PENICILLIN [Concomitant]

REACTIONS (2)
  - ALCOHOLISM [None]
  - SOCIAL PROBLEM [None]
